FAERS Safety Report 7384187-7 (Version None)
Quarter: 2011Q1

REPORT INFORMATION
  Report Type: 
  Country: None (occurrence: None)
  Receive Date: 20110330
  Receipt Date: 20110325
  Transmission Date: 20110831
  Serious: Yes (Death)
  Sender: FDA-Public Use
  Company Number: B0709208A

PATIENT
  Sex: Male
  Weight: 70 kg

DRUGS (5)
  1. CLARITHROMYCIN [Concomitant]
     Indication: PNEUMONIA
     Dosage: 500MG TWICE PER DAY
     Route: 042
     Dates: start: 20110301
  2. UNKNOWN DRUG [Concomitant]
     Dosage: 500MG THREE TIMES PER DAY
     Route: 042
     Dates: start: 20110302
  3. VANCOMYCIN [Concomitant]
     Indication: PNEUMONIA
     Dosage: 1000MG PER DAY
     Route: 042
     Dates: start: 20110305
  4. ZANAMIVIR [Suspect]
     Dosage: 600MG TWICE PER DAY
     Route: 042
     Dates: start: 20110228, end: 20110318
  5. UNKNOWN DRUG [Concomitant]
     Indication: PNEUMONIA
     Dosage: 500MG TWICE PER DAY
     Route: 042
     Dates: start: 20110220

REACTIONS (1)
  - PULMONARY FIBROSIS [None]
